FAERS Safety Report 5276568-2 (Version None)
Quarter: 2007Q1

REPORT INFORMATION
  Report Type: 
  Country: None (occurrence: None)
  Receive Date: 20070327
  Receipt Date: 20070314
  Transmission Date: 20070707
  Serious: Yes (Hospitalization, Other)
  Sender: FDA-Public Use
  Company Number: SE-JNJFOC-20070303581

PATIENT
  Age: 58 Year
  Sex: Female

DRUGS (9)
  1. REMICADE [Suspect]
     Indication: RHEUMATOID ARTHRITIS
     Route: 042
  2. METHOTREXATE [Suspect]
     Indication: RHEUMATOID ARTHRITIS
     Route: 048
  3. OMEPRAZOLE [Concomitant]
  4. FOLACIN [Concomitant]
     Route: 048
  5. GESTAPURAN [Concomitant]
  6. PREDNISOLONE [Concomitant]
     Route: 048
  7. ORUDIS RETARD [Concomitant]
     Route: 048
  8. FEMANEST [Concomitant]
     Route: 048
  9. CALCICHEW-D3 [Concomitant]
     Route: 048

REACTIONS (1)
  - B-CELL LYMPHOMA [None]
